FAERS Safety Report 4561789-4 (Version None)
Quarter: 2005Q1

REPORT INFORMATION
  Report Type: 
  Country: None (occurrence: None)
  Receive Date: 20050125
  Receipt Date: 20050113
  Transmission Date: 20050727
  Serious: Yes (Hospitalization)
  Sender: FDA-Public Use
  Company Number: ZICO001163

PATIENT
  Age: 37 Year
  Sex: Male
  Weight: 77.1115 kg

DRUGS (7)
  1. PRIALT [Suspect]
     Indication: PAIN
     Dosage: 0.262 MCG/HR INTRATHECAL
     Route: 037
     Dates: start: 20041221, end: 20041229
  2. ZANAFLEX [Concomitant]
  3. KLONOPIN [Concomitant]
  4. TRAZODONE (TRAZODONE) [Concomitant]
  5. FLONASE [Concomitant]
  6. MS CONTIN [Concomitant]
  7. DURAGESIC PATCH (FENTANYL PATC) [Concomitant]

REACTIONS (12)
  - BURNING SENSATION [None]
  - CONFUSIONAL STATE [None]
  - DECREASED APPETITE [None]
  - DISTURBANCE IN ATTENTION [None]
  - DRY MOUTH [None]
  - HALLUCINATION [None]
  - HALLUCINATIONS, MIXED [None]
  - NYSTAGMUS [None]
  - PAIN [None]
  - PSYCHOTIC DISORDER [None]
  - TARDIVE DYSKINESIA [None]
  - VISION BLURRED [None]
